FAERS Safety Report 5423972-5 (Version None)
Quarter: 2007Q3

REPORT INFORMATION
  Report Type: 
  Country: None (occurrence: None)
  Receive Date: 20070823
  Receipt Date: 20070817
  Transmission Date: 20080115
  Serious: Yes (Other)
  Sender: FDA-Public Use
  Company Number: US-PFIZER INC-2007068566

PATIENT
  Age: 72 Year
  Sex: Male
  Weight: 100 kg

DRUGS (3)
  1. SOLU-CORTEF [Suspect]
     Indication: VITRECTOMY
     Route: 051
  2. LISINOPRIL [Concomitant]
  3. GLIPIZIDE [Concomitant]

REACTIONS (4)
  - DRUG ADMINISTRATION ERROR [None]
  - MACULAR OEDEMA [None]
  - RETINAL OEDEMA [None]
  - VISUAL DISTURBANCE [None]
